FAERS Safety Report 5526528-9 (Version None)
Quarter: 2007Q4

REPORT INFORMATION
  Report Type: 
  Country: None (occurrence: None)
  Receive Date: 20071123
  Receipt Date: 20070716
  Transmission Date: 20080405
  Serious: Yes (Disabling, Other)
  Sender: FDA-Public Use
  Company Number: US-JNJFOC-20070500164

PATIENT
  Age: 58 Year
  Sex: Male
  Weight: 95.0739 kg

DRUGS (4)
  1. LEVAQUIN [Suspect]
     Indication: PROPHYLAXIS
     Dosage: 500 MG, 1 IN 1 DAY, INTRAVENOUS
     Route: 042
     Dates: start: 20040901, end: 20040901
  2. LEVAQUIN [Suspect]
     Indication: PROPHYLAXIS
     Dosage: 500 MG, ORAL
     Route: 048
     Dates: start: 20041101, end: 20041213
  3. LEVAQUIN [Suspect]
     Indication: PROPHYLAXIS
     Dosage: 500 MG, ORAL
     Route: 048
     Dates: start: 20040901
  4. ACIPHEX [Concomitant]

REACTIONS (1)
  - NEUROPATHY PERIPHERAL [None]
